FAERS Safety Report 11427502 (Version 1)
Quarter: 2015Q3

REPORT INFORMATION
  Report Type: Spontaneous
  Country: US (occurrence: US)
  Receive Date: 20150827
  Receipt Date: 20150827
  Transmission Date: 20151125
  Serious: No
  Sender: FDA-Public Use
  Company Number: US-SA-2015SA034054

PATIENT
  Age: 36 Year
  Sex: Male
  Weight: 86.2 kg

DRUGS (8)
  1. LEVOXYL [Concomitant]
     Active Substance: LEVOTHYROXINE SODIUM
  2. EPIPEN [Concomitant]
     Active Substance: EPINEPHRINE
  3. DILANTIN [Concomitant]
     Active Substance: PHENYTOIN
  4. FABRAZYME [Suspect]
     Active Substance: AGALSIDASE BETA
     Indication: LIPIDOSIS
     Route: 041
     Dates: start: 20040716
  5. FABRAZYME [Suspect]
     Active Substance: AGALSIDASE BETA
     Indication: LIPIDOSIS
     Route: 041
     Dates: start: 20040716
  6. CYMBALTA [Concomitant]
     Active Substance: DULOXETINE HYDROCHLORIDE
  7. NORMAL SALINE [Concomitant]
     Active Substance: SODIUM CHLORIDE
  8. NEXIUM [Concomitant]
     Active Substance: ESOMEPRAZOLE MAGNESIUM

REACTIONS (3)
  - Hypertension [Unknown]
  - Tremor [Unknown]
  - Pyrexia [Unknown]
